FAERS Safety Report 21327496 (Version 1)
Quarter: 2022Q3

REPORT INFORMATION
  Report Type: Spontaneous
  Country: US (occurrence: None)
  Receive Date: 20220912
  Receipt Date: 20220912
  Transmission Date: 20221027
  Serious: No
  Sender: FDA-Public Use
  Company Number: None

PATIENT
  Age: 83 Year
  Sex: Male

DRUGS (1)
  1. POMALYST [Suspect]
     Active Substance: POMALIDOMIDE
     Indication: Plasma cell myeloma
     Dosage: FREQUENCY : DAILY;?
     Route: 048
     Dates: start: 20170620, end: 202209

REACTIONS (6)
  - Abdominal pain [None]
  - Constipation [None]
  - Blood lactic acid increased [None]
  - Troponin increased [None]
  - Anion gap increased [None]
  - Ileus [None]

NARRATIVE: CASE EVENT DATE: 20220910
